FAERS Safety Report 11859977 (Version 1)
Quarter: 2015Q4

REPORT INFORMATION
  Report Type: Spontaneous
  Country: US (occurrence: US)
  Receive Date: 20151222
  Receipt Date: 20151222
  Transmission Date: 20160305
  Serious: No
  Sender: FDA-Public Use
  Company Number: US-PFIZER INC-2015409579

PATIENT
  Age: 48 Year
  Sex: Male

DRUGS (2)
  1. SUTENT [Suspect]
     Active Substance: SUNITINIB MALATE
     Dosage: UNK , CYCLIC ( ONE WEEK OFF OCCUR AFTER 14 DAYS)
  2. SUTENT [Suspect]
     Active Substance: SUNITINIB MALATE
     Indication: RENAL CANCER
     Dosage: 50 MG, CYCLIC (28 DAYS THEN 14 DAYS OFF)
     Route: 048

REACTIONS (3)
  - Pain in extremity [Unknown]
  - Impaired healing [Unknown]
  - Gingival pain [Unknown]
